FAERS Safety Report 18587689 (Version 1)
Quarter: 2020Q4

REPORT INFORMATION
  Report Type: Report from Study
  Country: None (occurrence: DE)
  Receive Date: 20201207
  Receipt Date: 20201207
  Transmission Date: 20210114
  Serious: Yes (Hospitalization)
  Sender: FDA-Public Use
  Company Number: DE-ABBVIE-20K-062-3678642-00

PATIENT
  Age: 52 Year
  Sex: Female

DRUGS (4)
  1. HUMIRA [Suspect]
     Active Substance: ADALIMUMAB
     Route: 058
     Dates: start: 20190416
  2. HUMIRA [Suspect]
     Active Substance: ADALIMUMAB
     Indication: AXIAL SPONDYLOARTHRITIS
     Route: 058
     Dates: start: 20170822, end: 20190402
  3. ETORICOXIB. [Concomitant]
     Active Substance: ETORICOXIB
     Indication: PRODUCT USED FOR UNKNOWN INDICATION
     Dates: start: 20180122, end: 20180314
  4. ACEMETACIN [Concomitant]
     Active Substance: ACEMETACIN
     Indication: PRODUCT USED FOR UNKNOWN INDICATION
     Dates: start: 20180315, end: 20180915

REACTIONS (2)
  - Neck pain [Unknown]
  - Spinal osteoarthritis [Unknown]

NARRATIVE: CASE EVENT DATE: 20200107
